FAERS Safety Report 4318699-7 (Version None)
Quarter: 2004Q1

REPORT INFORMATION
  Report Type: 
  Country: None (occurrence: None)
  Receive Date: 20040315
  Receipt Date: 20040301
  Transmission Date: 20041129
  Serious: Yes (Hospitalization)
  Sender: FDA-Public Use
  Company Number: PHBS2004CA03019

PATIENT
  Sex: Female

DRUGS (1)
  1. VISUDYNE [Suspect]
     Dates: start: 20040227, end: 20040227

REACTIONS (6)
  - EXTRAVASATION [None]
  - INJECTION SITE DISCOLOURATION [None]
  - NECROSIS [None]
  - OEDEMA PERIPHERAL [None]
  - PAIN IN EXTREMITY [None]
  - SOFT TISSUE DISORDER [None]
